FAERS Safety Report 5222595-0 (Version None)
Quarter: 2007Q1

REPORT INFORMATION
  Report Type: 
  Country: None (occurrence: None)
  Receive Date: 20070127
  Receipt Date: 20070112
  Transmission Date: 20070707
  Serious: Yes (Other)
  Sender: FDA-Public Use
  Company Number: 2006BI017891

PATIENT
  Age: 35 Year
  Sex: Female

DRUGS (2)
  1. NATALIZUMAB [Suspect]
     Indication: MULTIPLE SCLEROSIS
     Dosage: 300 MG; QM; IV
     Route: 042
     Dates: start: 20041201, end: 20050101
  2. NATALIZUMAB [Suspect]
     Indication: MULTIPLE SCLEROSIS
     Dosage: 300 MG; QM; IV
     Route: 042
     Dates: start: 20061109, end: 20061205

REACTIONS (9)
  - ANAPHYLACTOID REACTION [None]
  - CONVULSION [None]
  - DIZZINESS [None]
  - ERYTHEMA [None]
  - FEELING HOT [None]
  - HYPERHIDROSIS [None]
  - INFUSION RELATED REACTION [None]
  - LOSS OF CONSCIOUSNESS [None]
  - MUSCLE TWITCHING [None]
